FAERS Safety Report 7493811-X (Version None)
Quarter: 2011Q2

REPORT INFORMATION
  Report Type: 
  Country: None (occurrence: None)
  Receive Date: 20110520
  Receipt Date: 20110517
  Transmission Date: 20111010
  Serious: Yes (Other)
  Sender: FDA-Public Use
  Company Number: IT-PFIZER INC-2011106645

PATIENT
  Age: 55 Year
  Sex: Male

DRUGS (5)
  1. ZANTAC [Concomitant]
     Dosage: 50 MG, UNK
     Dates: start: 20110512, end: 20110512
  2. ALOXI [Concomitant]
     Dosage: 250 UG, UNK
     Route: 042
     Dates: start: 20110512, end: 20110512
  3. DEXAMETHASONE SODIUM PHOSPHATE [Concomitant]
     Dosage: 8 MG, UNK
     Dates: start: 20110512, end: 20110512
  4. CAMPTOSAR [Suspect]
     Indication: RECTAL CANCER STAGE IV
     Dosage: 400 MG, TOTAL DOSE
     Route: 041
     Dates: start: 20110512, end: 20110512
  5. ATROPINA SULFATO GALENICA SENESE [Concomitant]
     Dosage: 0.25 MG, UNK
     Route: 058
     Dates: start: 20110512, end: 20110512

REACTIONS (2)
  - ACCOMMODATION DISORDER [None]
  - APHASIA [None]
